FAERS Safety Report 19159113 (Version 1)
Quarter: 2021Q2

REPORT INFORMATION
  Report Type: Spontaneous
  Country: ES (occurrence: ES)
  Receive Date: 20210420
  Receipt Date: 20210420
  Transmission Date: 20210717
  Serious: Yes (Other)
  Sender: FDA-Public Use
  Company Number: ES-PFIZER INC-2021397806

PATIENT
  Age: 23 Year
  Sex: Female
  Weight: 55 kg

DRUGS (1)
  1. VANDRAL RETARD [Suspect]
     Active Substance: VENLAFAXINE HYDROCHLORIDE
     Indication: ANXIETY DISORDER
     Dosage: 75 MG, 1X/DAY (1 CAPSULE (75 MG) PER DAY)
     Route: 048
     Dates: start: 20210119, end: 20210327

REACTIONS (12)
  - Dizziness postural [Recovering/Resolving]
  - Restlessness [Recovering/Resolving]
  - Ear pain [Recovering/Resolving]
  - Vertigo [Recovering/Resolving]
  - Heart rate abnormal [Recovering/Resolving]
  - Dyspnoea [Recovering/Resolving]
  - Vomiting [Recovered/Resolved]
  - Rash [Recovering/Resolving]
  - Chest discomfort [Recovering/Resolving]
  - Hot flush [Recovering/Resolving]
  - Bruxism [Recovering/Resolving]
  - Asthenia [Recovering/Resolving]

NARRATIVE: CASE EVENT DATE: 20210322
